FAERS Safety Report 9013959 (Version 1)
Quarter: 2013Q1

REPORT INFORMATION
  Report Type: Report from Study
  Country: US (occurrence: US)
  Receive Date: 20130115
  Receipt Date: 20130115
  Transmission Date: 20140127
  Serious: Yes (Death, Hospitalization, Other)
  Sender: FDA-Public Use
  Company Number: US-ROCHE-702521

PATIENT
  Sex: Male
  Weight: 71.7 kg

DRUGS (1)
  1. CAPECITABINE [Suspect]
     Indication: PANCREATIC CARCINOMA
     Route: 048

REACTIONS (4)
  - Pain [Unknown]
  - Disease progression [Fatal]
  - Death [Fatal]
  - Constipation [Unknown]
